FAERS Safety Report 10884786 (Version 1)
Quarter: 2015Q1

REPORT INFORMATION
  Report Type: Spontaneous
  Country: GB (occurrence: None)
  Receive Date: 20150227
  Receipt Date: 20150227
  Transmission Date: 20150721
  Serious: Yes (Other)
  Sender: FDA-Public Use
  Company Number: FK201500948

PATIENT
  Age: 61 Year
  Sex: Female
  Weight: 55 kg

DRUGS (2)
  1. CINNARIZINE [Concomitant]
     Active Substance: CINNARIZINE
  2. ANASTROZOLE (MANUFACTURER UNKNOWN) (ANASTROZOLE) (ANASTROZOLE) [Suspect]
     Active Substance: ANASTROZOLE
     Indication: BREAST CANCER FEMALE
     Dosage: 1 MG, 1 IN 1 D, ORAL
     Route: 048

REACTIONS (8)
  - Vestibular disorder [None]
  - Nausea [None]
  - Bone pain [None]
  - Headache [None]
  - Hot flush [None]
  - Vasculitis [None]
  - Arthralgia [None]
  - Condition aggravated [None]
